FAERS Safety Report 25255857 (Version 1)
Quarter: 2025Q2

REPORT INFORMATION
  Report Type: Spontaneous
  Country: US (occurrence: None)
  Receive Date: 20250430
  Receipt Date: 20250430
  Transmission Date: 20250716
  Serious: Yes (Death)
  Sender: FDA-CTU
  Company Number: None

PATIENT
  Age: 61 Year
  Sex: Male

DRUGS (1)
  1. ACTIMMUNE [Suspect]
     Active Substance: INTERFERON GAMMA-1B
     Indication: Immunodeficiency
     Dosage: FREQUENCY : 3 TIMES A WEEK;?

REACTIONS (1)
  - Death [None]

NARRATIVE: CASE EVENT DATE: 20250418
